FAERS Safety Report 10179300 (Version 1)
Quarter: 2014Q2

REPORT INFORMATION
  Report Type: Spontaneous
  Country: US (occurrence: None)
  Receive Date: 20140515
  Receipt Date: 20140515
  Transmission Date: 20141212
  Serious: Yes (Hospitalization)
  Sender: FDA-Public Use
  Company Number: UTC-047603

PATIENT
  Age: 37 Year
  Sex: Female
  Weight: 85.73 kg

DRUGS (5)
  1. REMODULIN [Suspect]
     Indication: COR PULMONALE CHRONIC
     Dosage: 28.8 UG.KG (0.02 UG/KG, 1 IN 1 MIN), SUBCUTANEOUS
     Route: 058
     Dates: start: 20140325
  2. TIZANIDINE (TIZANIDINE) [Suspect]
     Indication: PRODUCT USED FOR UNKNOWN INDICATION
  3. ADCIRCA (TADALAFIL) [Concomitant]
  4. LETAIRIS (AMBRISENTAN) [Concomitant]
  5. WARFARIN (WARFARIN) [Concomitant]

REACTIONS (6)
  - Therapy change [None]
  - Headache [None]
  - Myalgia [None]
  - Pain in jaw [None]
  - Nausea [None]
  - Vomiting [None]
